FAERS Safety Report 14407421 (Version 1)
Quarter: 2018Q1

REPORT INFORMATION
  Report Type: Spontaneous
  Country: US (occurrence: US)
  Receive Date: 20180118
  Receipt Date: 20180118
  Transmission Date: 20180509
  Serious: No
  Sender: FDA-Public Use
  Company Number: US-BIOGEN-2018BI00509901

PATIENT
  Sex: Female

DRUGS (1)
  1. AVONEX [Suspect]
     Active Substance: INTERFERON BETA-1A
     Indication: MULTIPLE SCLEROSIS
     Route: 030

REACTIONS (7)
  - Dysphagia [Unknown]
  - Muscular weakness [Unknown]
  - Influenza like illness [Recovered/Resolved]
  - Optic neuritis [Unknown]
  - Peroneal nerve palsy [Unknown]
  - Fall [Recovered/Resolved]
  - Musculoskeletal disorder [Unknown]
